FAERS Safety Report 13299917 (Version 2)
Quarter: 2017Q1

REPORT INFORMATION
  Report Type: Spontaneous
  Country: US (occurrence: US)
  Receive Date: 20170306
  Receipt Date: 20170321
  Transmission Date: 20170428
  Serious: Yes (Life-Threatening, Hospitalization, Other)
  Sender: FDA-Public Use
  Company Number: US-ELI_LILLY_AND_COMPANY-US201608002985

PATIENT
  Age: 48 Year
  Sex: Female

DRUGS (7)
  1. XANAX [Suspect]
     Active Substance: ALPRAZOLAM
     Route: 065
  2. CYMBALTA [Suspect]
     Active Substance: DULOXETINE HYDROCHLORIDE
     Indication: PRODUCT USED FOR UNKNOWN INDICATION
     Dosage: 60 MG, UNKNOWN
     Route: 048
  3. HYDROCODONE BITARTRATE AND ACETAMINOPHEN [Suspect]
     Active Substance: ACETAMINOPHEN\HYDROCODONE BITARTRATE
     Dosage: 69 DF, SINGLE
  4. MARIJUANA [Concomitant]
     Active Substance: CANNABIS SATIVA SUBSP. INDICA TOP
  5. METHADONE [Suspect]
     Active Substance: METHADONE HYDROCHLORIDE
     Route: 065
  6. XANAX [Suspect]
     Active Substance: ALPRAZOLAM
     Dosage: 14 MG, SINGLE
     Route: 065
     Dates: start: 20100130
  7. COCAINE [Concomitant]
     Active Substance: COCAINE

REACTIONS (22)
  - Hyperhidrosis [Unknown]
  - Insomnia [Unknown]
  - Drug abuse [Recovered/Resolved]
  - Suicide attempt [Recovered/Resolved]
  - Suicidal ideation [Unknown]
  - Dizziness [Unknown]
  - Lethargy [Unknown]
  - Intentional overdose [Recovered/Resolved]
  - Intentional product misuse [Unknown]
  - Fatigue [Unknown]
  - Vomiting [Unknown]
  - Respiratory acidosis [Recovered/Resolved]
  - Dysphoria [Unknown]
  - Agitation [Unknown]
  - Drug withdrawal syndrome [Unknown]
  - Anxiety [Unknown]
  - Affect lability [Unknown]
  - Nausea [Unknown]
  - Alcohol abuse [Recovered/Resolved]
  - Paraesthesia [Unknown]
  - Irritability [Unknown]
  - Headache [Unknown]

NARRATIVE: CASE EVENT DATE: 20100130
